FAERS Safety Report 9617671 (Version 2)
Quarter: 2013Q4

REPORT INFORMATION
  Report Type: Spontaneous
  Country: BR (occurrence: BR)
  Receive Date: 20131011
  Receipt Date: 20131202
  Transmission Date: 20140711
  Serious: Yes (Other)
  Sender: FDA-Public Use
  Company Number: BR-ELI_LILLY_AND_COMPANY-BR201310000430

PATIENT
  Sex: Female
  Weight: 109 kg

DRUGS (5)
  1. HUMALOG [Suspect]
     Indication: DIABETES MELLITUS
     Dosage: 8 IU, UNKNOWN
     Route: 058
     Dates: start: 2010
  2. HUMALOG [Suspect]
     Dosage: 10 IU, UNKNOWN
     Route: 058
     Dates: start: 2010
  3. HUMULIN N [Suspect]
     Indication: DIABETES MELLITUS
     Dosage: 42 IU, EACH MORNING
     Route: 058
     Dates: start: 2000
  4. HUMULIN N [Suspect]
     Dosage: 22 IU, EACH EVENING
     Route: 058
     Dates: start: 2000
  5. LOSARTAN                           /01121602/ [Concomitant]
     Indication: HYPERTENSION
     Dosage: 50 MG, BID
     Route: 065

REACTIONS (3)
  - Keratoconus [Not Recovered/Not Resolved]
  - Joint swelling [Recovered/Resolved]
  - Osteoporosis [Unknown]
